APPROVED DRUG PRODUCT: PROTONIX IV
Active Ingredient: PANTOPRAZOLE SODIUM
Strength: EQ 40MG BASE/VIAL
Dosage Form/Route: INJECTABLE;INTRAVENOUS
Application: N020988 | Product #001 | TE Code: AP
Applicant: WYETH PHARMACEUTICALS LLC
Approved: Mar 22, 2001 | RLD: Yes | RS: Yes | Type: RX

EXCLUSIVITY:
Code: NPP | Date: Aug 12, 2027